FAERS Safety Report 21771338 (Version 1)
Quarter: 2022Q4

REPORT INFORMATION
  Report Type: Other
  Country: US (occurrence: None)
  Receive Date: 20221223
  Receipt Date: 20221223
  Transmission Date: 20230113
  Serious: Yes (Other)
  Sender: FDA-Public Use
  Company Number: US-ROCHE-2352121

PATIENT
  Sex: Male

DRUGS (2)
  1. VALCYTE [Suspect]
     Active Substance: VALGANCICLOVIR HYDROCHLORIDE
     Indication: Liver transplant
     Dosage: 450 MG 2 TABLETS QD
     Route: 048
  2. CELLCEPT [Suspect]
     Active Substance: MYCOPHENOLATE MOFETIL
     Indication: Liver transplant
     Dosage: 250MG 3 CAPSULES BID
     Route: 065

REACTIONS (3)
  - Off label use [Unknown]
  - Off label use [Unknown]
  - Bell^s palsy [Unknown]
